FAERS Safety Report 11872474 (Version 1)
Quarter: 2015Q4

REPORT INFORMATION
  Report Type: Other
  Country: US (occurrence: US)
  Receive Date: 20151228
  Receipt Date: 20151228
  Transmission Date: 20160305
  Serious: Yes (Other)
  Sender: FDA-Public Use
  Company Number: US-PURDUE-DEU-2015-0017513

PATIENT
  Age: 53 Year
  Sex: Male

DRUGS (4)
  1. PROPOFOL. [Suspect]
     Active Substance: PROPOFOL
     Indication: SEDATIVE THERAPY
     Dosage: MAX RATE: 15MCG/KG/MIN
     Route: 065
  2. PROPOFOL. [Suspect]
     Active Substance: PROPOFOL
     Indication: ANALGESIC THERAPY
  3. NON-PMN MORPHINE SULFATE [Suspect]
     Active Substance: MORPHINE SULFATE
     Indication: SEDATIVE THERAPY
     Dosage: MAX RATE: 6MG/HR
     Route: 065
  4. NON-PMN MORPHINE SULFATE [Suspect]
     Active Substance: MORPHINE SULFATE
     Indication: ANALGESIC THERAPY

REACTIONS (2)
  - Pancreatitis [Recovered/Resolved]
  - Acute kidney injury [Recovered/Resolved]
